FAERS Safety Report 13052422 (Version 1)
Quarter: 2016Q4

REPORT INFORMATION
  Report Type: Report from Study
  Country: None (occurrence: BR)
  Receive Date: 20161221
  Receipt Date: 20161221
  Transmission Date: 20170207
  Serious: Yes (Hospitalization)
  Sender: FDA-Public Use
  Company Number: BR-ABBVIE-16P-020-1814837-00

PATIENT
  Age: 84 Year
  Sex: Female

DRUGS (9)
  1. TYLEX [Concomitant]
     Active Substance: ACETAMINOPHEN\CODEINE PHOSPHATE
     Indication: PAIN
     Dates: start: 201609
  2. SPIRONOLACTONE. [Concomitant]
     Active Substance: SPIRONOLACTONE
     Indication: CARDIAC DISORDER
     Route: 048
     Dates: start: 2015
  3. ENALAPRIL [Concomitant]
     Active Substance: ENALAPRIL
     Indication: CARDIAC DISORDER
     Route: 048
     Dates: start: 2015
  4. OSTEOTRAT [Concomitant]
     Indication: BONE DISORDER
     Route: 048
     Dates: start: 201608
  5. ACETYLSALICYLIC ACID [Concomitant]
     Active Substance: ASPIRIN
     Indication: BLOOD DISORDER
     Route: 048
     Dates: start: 20160908
  6. CARVEDILOL. [Concomitant]
     Active Substance: CARVEDILOL
     Indication: CARDIAC DISORDER
     Route: 048
     Dates: start: 2015
  7. OSTEOTRAT [Concomitant]
     Indication: RHEUMATIC DISORDER
  8. HUMIRA [Suspect]
     Active Substance: ADALIMUMAB
     Indication: RHEUMATOID ARTHRITIS
     Route: 058
     Dates: start: 20130101
  9. SINVASTACOR [Concomitant]
     Active Substance: SIMVASTATIN
     Indication: CARDIAC DISORDER
     Route: 048
     Dates: start: 2015

REACTIONS (5)
  - Ischaemic stroke [Recovered/Resolved with Sequelae]
  - Constipation [Recovering/Resolving]
  - Weight decreased [Recovering/Resolving]
  - Dehydration [Recovered/Resolved]
  - Somnolence [Not Recovered/Not Resolved]

NARRATIVE: CASE EVENT DATE: 201609
